FAERS Safety Report 11127227 (Version 1)
Quarter: 2015Q2

REPORT INFORMATION
  Report Type: Spontaneous
  Country: US (occurrence: None)
  Receive Date: 20150520
  Receipt Date: 20150520
  Transmission Date: 20150821
  Serious: Yes (Other)
  Sender: FDA-Public Use
  Company Number: None

PATIENT
  Age: 62 Year
  Sex: Female

DRUGS (1)
  1. AVONEX [Suspect]
     Active Substance: INTERFERON BETA-1A
     Indication: MULTIPLE SCLEROSIS
     Dosage: ROUTE: INTRAMUSCULAR  030  DOSE FORM: INJECTABLE  FREQUENCY: QWEEK
     Route: 030
     Dates: start: 2011, end: 20150301

REACTIONS (1)
  - Fatigue [None]

NARRATIVE: CASE EVENT DATE: 20150301
